FAERS Safety Report 6861528-8 (Version None)
Quarter: 2010Q3

REPORT INFORMATION
  Report Type: 
  Country: None (occurrence: None)
  Receive Date: 20100720
  Receipt Date: 20100716
  Transmission Date: 20110219
  Serious: Yes (Hospitalization, Other)
  Sender: FDA-Public Use
  Company Number: FR-BRISTOL-MYERS SQUIBB COMPANY-15197981

PATIENT
  Age: 57 Year
  Sex: Female

DRUGS (8)
  1. COUMADIN [Suspect]
     Dates: start: 20011001, end: 20090713
  2. KARDEGIC [Suspect]
     Dates: start: 20011001, end: 20090713
  3. TRIATEC [Suspect]
     Dates: start: 20010101
  4. TAHOR [Suspect]
     Dates: start: 20010101
  5. INIPOMP [Suspect]
  6. TENORMIN [Concomitant]
  7. LEVOTHYROXINE SODIUM [Concomitant]
  8. KEPPRA [Concomitant]

REACTIONS (3)
  - CEREBRAL HAEMATOMA [None]
  - EPILEPSY [None]
  - MYOCARDIAL INFARCTION [None]
